FAERS Safety Report 16326460 (Version 3)
Quarter: 2019Q2

REPORT INFORMATION
  Report Type: Spontaneous
  Country: DE (occurrence: DE)
  Receive Date: 20190517
  Receipt Date: 20190531
  Transmission Date: 20190711
  Serious: Yes (Other)
  Sender: FDA-Public Use
  Company Number: DE-AMGEN-DEUSP2019068518

PATIENT
  Age: 67 Year
  Sex: Male
  Weight: 57 kg

DRUGS (3)
  1. MIMPARA [Suspect]
     Active Substance: CINACALCET HYDROCHLORIDE
     Indication: PRODUCT USED FOR UNKNOWN INDICATION
     Dosage: UNK
     Route: 065
  2. PARSABIV [Suspect]
     Active Substance: ETELCALCETIDE HYDROCHLORIDE
     Indication: HYPERPARATHYROIDISM SECONDARY
     Dosage: 10 MILLIGRAM, THREE TIMES IN AWEEK
     Route: 042
     Dates: start: 2018
  3. PARSABIV [Suspect]
     Active Substance: ETELCALCETIDE HYDROCHLORIDE
     Dosage: 15 MILLIGRAM, THREE TIMES IN AWEEK
     Route: 042
     Dates: start: 20190503

REACTIONS (16)
  - Blood alkaline phosphatase decreased [Unknown]
  - Post procedural haemorrhage [Unknown]
  - Drug intolerance [Unknown]
  - Vascular pseudoaneurysm [Unknown]
  - Abdominal pain [Recovering/Resolving]
  - C-reactive protein increased [Recovering/Resolving]
  - Hypertension [Unknown]
  - Blood parathyroid hormone increased [Not Recovered/Not Resolved]
  - Hypoaesthesia [Unknown]
  - Feeling hot [Unknown]
  - Peripheral swelling [Unknown]
  - Oedema peripheral [Unknown]
  - Wound complication [Unknown]
  - Haemoglobin decreased [Unknown]
  - Hypercalcaemia [Not Recovered/Not Resolved]
  - Fatigue [Unknown]

NARRATIVE: CASE EVENT DATE: 20181019
